FAERS Safety Report 23037199 (Version 2)
Quarter: 2023Q4

REPORT INFORMATION
  Report Type: Report from Study
  Country: MX (occurrence: MX)
  Receive Date: 20231006
  Receipt Date: 20231019
  Transmission Date: 20240110
  Serious: Yes (Other)
  Sender: FDA-Public Use
  Company Number: MX-002147023-NVSC2023MX214451

PATIENT
  Sex: Female
  Weight: 79 kg

DRUGS (6)
  1. EXFORGE HCT [Suspect]
     Active Substance: AMLODIPINE BESYLATE\HYDROCHLOROTHIAZIDE\VALSARTAN
     Indication: Hypertension
     Dosage: 1 DOSAGE FORM, (10/320/25 MG) QD
     Route: 048
     Dates: start: 20230817
  2. EXFORGE HCT [Suspect]
     Active Substance: AMLODIPINE BESYLATE\HYDROCHLOROTHIAZIDE\VALSARTAN
     Dosage: 1.5 DOSAGE FORM, (10/320/2 5 MG), (BY MEDICAL PRESCRIPTION TAKING A TABLET AND HALF IF HER PRESSURE
     Route: 048
  3. EXFORGE HCT [Suspect]
     Active Substance: AMLODIPINE BESYLATE\HYDROCHLOROTHIAZIDE\VALSARTAN
     Dosage: 1 DOSAGE FORM, (10/320/25 MG), QD, START DATE: 40 YEARS AGO
     Route: 048
  4. NEBIVOLOL [Concomitant]
     Active Substance: NEBIVOLOL
     Indication: Hypertension
     Dosage: 1 (5 MG), Q24H
     Route: 048
     Dates: start: 20230817
  5. VALERIAN [Concomitant]
     Active Substance: VALERIAN
     Indication: Relaxation therapy
     Dosage: 2 DOSAGE FORM, Q24H
     Route: 048
     Dates: start: 20230817
  6. PANTOPRAZOLE [Concomitant]
     Active Substance: PANTOPRAZOLE
     Indication: Gastritis
     Dosage: 1 (40 MG), QD, START DATE: 40 YEARS AGO
     Route: 048

REACTIONS (2)
  - Blood pressure increased [Recovering/Resolving]
  - Off label use [Unknown]
